FAERS Safety Report 15150248 (Version 1)
Quarter: 2018Q3

REPORT INFORMATION
  Report Type: Spontaneous
  Country: US (occurrence: US)
  Receive Date: 20180619
  Receipt Date: 20180619
  Transmission Date: 20181010
  Serious: Yes (Other)
  Sender: FDA-Public Use
  Company Number: None

PATIENT
  Age: 77 Year
  Weight: 63.18 kg

DRUGS (14)
  1. OCUFLOX [Concomitant]
     Active Substance: OFLOXACIN
  2. PRED FORTE [Concomitant]
     Active Substance: PREDNISOLONE ACETATE
  3. DEXAMETHASONE. [Concomitant]
     Active Substance: DEXAMETHASONE
  4. LETROZOLE. [Concomitant]
     Active Substance: LETROZOLE
  5. TIMOLOL. [Concomitant]
     Active Substance: TIMOLOL
  6. RANITIDINE. [Concomitant]
     Active Substance: RANITIDINE
  7. AMLODIPINE [Concomitant]
     Active Substance: AMLODIPINE BESYLATE
  8. CALCIUM + D3 [Concomitant]
     Active Substance: CALCIUM\CHOLECALCIFEROL
  9. IBRANCE [Suspect]
     Active Substance: PALBOCICLIB
     Indication: BREAST CANCER
     Route: 048
     Dates: start: 20180524, end: 20180619
  10. FISH OIL [Concomitant]
     Active Substance: FISH OIL
  11. MUTLIVITAMIN [Concomitant]
  12. CINNAMON. [Concomitant]
     Active Substance: CINNAMON
  13. DOXYCYCLINE. [Concomitant]
     Active Substance: DOXYCYCLINE
  14. VITAMIN D [Concomitant]
     Active Substance: CHOLECALCIFEROL

REACTIONS (1)
  - Disease progression [None]
